APPROVED DRUG PRODUCT: FLURBIPROFEN
Active Ingredient: FLURBIPROFEN
Strength: 100MG
Dosage Form/Route: TABLET;ORAL
Application: A074431 | Product #001
Applicant: NEW HEIGHTSRX LLC
Approved: May 31, 1995 | RLD: No | RS: Yes | Type: RX